FAERS Safety Report 9841015 (Version 1)
Quarter: 2014Q1

REPORT INFORMATION
  Report Type: Spontaneous
  Country: US (occurrence: None)
  Receive Date: 20140123
  Receipt Date: 20140123
  Transmission Date: 20141002
  Serious: Yes (Hospitalization)
  Sender: FDA-Public Use
  Company Number: None

PATIENT
  Age: 58 Year
  Sex: Female
  Weight: 36.42 kg

DRUGS (11)
  1. TAMIFLU [Suspect]
     Indication: INFLUENZA
     Route: 048
     Dates: start: 20140114, end: 20140116
  2. AMLODIPINE [Concomitant]
  3. CARVEDILOL [Concomitant]
  4. PROZAC [Concomitant]
  5. LANTUS [Concomitant]
  6. LEVOTHROID [Concomitant]
  7. PLAVIX [Concomitant]
  8. HEPARIN [Concomitant]
  9. PROTONIX [Concomitant]
  10. RENAGEL [Concomitant]
  11. GABAPENTIN [Concomitant]

REACTIONS (11)
  - Dizziness [None]
  - Loss of consciousness [None]
  - Heart rate increased [None]
  - Nausea [None]
  - Vomiting [None]
  - Dialysis [None]
  - Blood glucose increased [None]
  - Bradyarrhythmia [None]
  - Diabetes mellitus [None]
  - No therapeutic response [None]
  - Blood pressure systolic decreased [None]
